FAERS Safety Report 12647073 (Version 1)
Quarter: 2016Q3

REPORT INFORMATION
  Report Type: Spontaneous
  Country: US (occurrence: None)
  Receive Date: 20160811
  Receipt Date: 20160811
  Transmission Date: 20161109
  Serious: Yes (Life-Threatening, Hospitalization)
  Sender: FDA-Public Use
  Company Number: None

PATIENT
  Age: 61 Year
  Sex: Female
  Weight: 83.92 kg

DRUGS (7)
  1. MORPHINE [Concomitant]
     Active Substance: MORPHINE
  2. O2 [Concomitant]
  3. PREDNISON [Concomitant]
     Active Substance: PREDNISONE
  4. GABAPENTIN. [Concomitant]
     Active Substance: GABAPENTIN
  5. GUPHASEN W/CODENE [Concomitant]
  6. ADAVAN [Concomitant]
     Active Substance: UNSPECIFIED INGREDIENT
  7. OPDIVO [Suspect]
     Active Substance: NIVOLUMAB
     Indication: LUNG NEOPLASM MALIGNANT
     Dosage: BI-WEEKLY INTO A VEIN
     Dates: start: 20160505, end: 20160519

REACTIONS (3)
  - Infection [None]
  - Traumatic lung injury [None]
  - Pneumonia [None]

NARRATIVE: CASE EVENT DATE: 20160512
